FAERS Safety Report 4282251-2 (Version None)
Quarter: 2004Q1

REPORT INFORMATION
  Report Type: 
  Country: None (occurrence: None)
  Receive Date: 20040112
  Receipt Date: 20030225
  Transmission Date: 20041129
  Serious: Yes (Death, Life-Threatening)
  Sender: FDA-Public Use
  Company Number: SP-199800344

PATIENT
  Age: 69 Year
  Sex: Male

DRUGS (11)
  1. REOPRO [Suspect]
     Indication: CORONARY ANGIOPLASTY
     Dosage: 0.25 MG/ KG BOLUS PLUS 10 ,CG/MN INFUSION
  2. HEPARIN [Suspect]
  3. ASPIRIN [Concomitant]
  4. RED BLOOD CELLS [Concomitant]
     Dosage: 2 UNITS
  5. VASOPRESSORS (VASOPRESSIN AND ANALOGUES) [Concomitant]
  6. EPINEPHRINE [Concomitant]
  7. FUROSEMIDE [Concomitant]
  8. DOPAMINE [Concomitant]
  9. NITROGLYCERIN [Concomitant]
  10. LIDOCAINE [Concomitant]
  11. ATROPINE [Concomitant]

REACTIONS (3)
  - BRADYCARDIA [None]
  - HYPOTENSION [None]
  - PULMONARY HAEMORRHAGE [None]
